FAERS Safety Report 6279786-X (Version None)
Quarter: 2009Q3

REPORT INFORMATION
  Report Type: 
  Country: None (occurrence: None)
  Receive Date: 20090723
  Receipt Date: 20090513
  Transmission Date: 20100115
  Serious: No
  Sender: FDA-Public Use
  Company Number: US-BAYER-200921687NA

PATIENT
  Age: 43 Year
  Sex: Female
  Weight: 105 kg

DRUGS (11)
  1. MAGNEVIST [Suspect]
     Indication: NUCLEAR MAGNETIC RESONANCE IMAGING BRAIN
     Dosage: TOTAL DAILY DOSE: 21 ML
     Route: 042
     Dates: start: 20090513, end: 20090513
  2. BUSPAR [Concomitant]
  3. TRAZODONE [Concomitant]
  4. OMEPRAZOLE [Concomitant]
  5. TOPROL-XL [Concomitant]
  6. IBUPROFEN [Concomitant]
  7. ASPIRIN [Concomitant]
     Dosage: AS USED: 81 MG
  8. CATAPRES TTS-2 PATCH [Concomitant]
  9. HYDROCHLOROTHIAZIDE [Concomitant]
  10. FLEXERIL [Concomitant]
  11. REGLAN [Concomitant]

REACTIONS (2)
  - ERYTHEMA [None]
  - URTICARIA [None]
